FAERS Safety Report 8427920-5 (Version None)
Quarter: 2012Q2

REPORT INFORMATION
  Report Type: 
  Country: None (occurrence: None)
  Receive Date: 20120611
  Receipt Date: 20120424
  Transmission Date: 20120825
  Serious: No
  Sender: FDA-Public Use
  Company Number: US-ASTRAZENECA-2012SE26931

PATIENT
  Age: 66 Year
  Sex: Male

DRUGS (4)
  1. RHINOCORT [Suspect]
     Route: 045
  2. NEXIUM [Suspect]
     Route: 048
  3. SYMBICORT [Suspect]
     Route: 055
  4. ADVAIR DISKUS 100/50 [Concomitant]

REACTIONS (1)
  - NASOPHARYNGITIS [None]
